FAERS Safety Report 16610632 (Version 1)
Quarter: 2019Q3

REPORT INFORMATION
  Report Type: Spontaneous
  Country: DE (occurrence: DE)
  Receive Date: 20190722
  Receipt Date: 20190722
  Transmission Date: 20191004
  Serious: Yes (Hospitalization, Other)
  Sender: FDA-Public Use
  Company Number: PHHY2019DE164453

PATIENT
  Age: 17 Year
  Sex: Female
  Weight: 41 kg

DRUGS (5)
  1. MYCOPHENOLATE MOFETIL. [Suspect]
     Active Substance: MYCOPHENOLATE MOFETIL
     Indication: LIMBIC ENCEPHALITIS
     Dosage: 3 DF, QD (2 SEPARATED DOSES)
     Route: 048
     Dates: start: 20181115, end: 20190321
  2. PREDNISOLON [Concomitant]
     Active Substance: PREDNISOLONE
     Indication: LIMBIC ENCEPHALITIS
     Dosage: 7.5 MG, QD
     Route: 048
     Dates: start: 20150709, end: 20190312
  3. LACOSAMIDE. [Concomitant]
     Active Substance: LACOSAMIDE
     Indication: PARTIAL SEIZURES
     Dosage: 2.5 DF, QD (1.5-0-1)
     Route: 048
  4. LAMOTRIGIN [Concomitant]
     Active Substance: LAMOTRIGINE
     Indication: PARTIAL SEIZURES
     Dosage: 4 DF, QD ( 2 SEPARATED DOSES)
     Route: 048
     Dates: start: 20160120
  5. OXCARBAZEPINE. [Suspect]
     Active Substance: OXCARBAZEPINE
     Indication: PARTIAL SEIZURES
     Dosage: 75 MG, QD
     Route: 065
     Dates: start: 20190110, end: 20190311

REACTIONS (3)
  - Condition aggravated [Recovered/Resolved]
  - Weight decreased [Recovered/Resolved]
  - Generalised tonic-clonic seizure [Recovered/Resolved]

NARRATIVE: CASE EVENT DATE: 20190304
